FAERS Safety Report 7651738-4 (Version None)
Quarter: 2011Q3

REPORT INFORMATION
  Report Type: 
  Country: None (occurrence: None)
  Receive Date: 20110802
  Receipt Date: 20110725
  Transmission Date: 20111222
  Serious: Yes (Hospitalization, Other)
  Sender: FDA-Public Use
  Company Number: US-MERCK-1103USA00266

PATIENT
  Age: 62 Year
  Sex: Female
  Weight: 65 kg

DRUGS (5)
  1. FOSAMAX [Suspect]
     Route: 048
     Dates: start: 20001201, end: 20080701
  2. ALENDRONATE SODIUM [Suspect]
     Indication: OSTEOPENIA
     Route: 048
     Dates: start: 20080701, end: 20090801
  3. FOSAMAX [Suspect]
     Indication: OSTEOPENIA
     Route: 048
     Dates: start: 20000701, end: 20001201
  4. CALCIUM (UNSPECIFIED) [Concomitant]
     Route: 065
  5. VITAMIN D (UNSPECIFIED) [Concomitant]
     Route: 065

REACTIONS (11)
  - HYPERCHOLESTEROLAEMIA [None]
  - BLOOD GLUCOSE INCREASED [None]
  - CERUMEN IMPACTION [None]
  - FEMUR FRACTURE [None]
  - FALL [None]
  - HAEMORRHOIDS [None]
  - MUSCULOSKELETAL PAIN [None]
  - BLOOD HOMOCYSTEINE INCREASED [None]
  - BLOOD TRIGLYCERIDES INCREASED [None]
  - TENDONITIS [None]
  - FOOT FRACTURE [None]
